FAERS Safety Report 8969902 (Version 3)
Quarter: 2013Q2

REPORT INFORMATION
  Report Type: Spontaneous
  Country: US (occurrence: US)
  Receive Date: 20121218
  Receipt Date: 20130404
  Transmission Date: 20140414
  Serious: No
  Sender: FDA-Public Use
  Company Number: US-009507513-1212USA004470

PATIENT
  Age: 47 Year
  Sex: Female
  Weight: 117.91 kg

DRUGS (1)
  1. IMPLANON [Suspect]
     Indication: CONTRACEPTION
     Dosage: UNK
     Dates: start: 20120822

REACTIONS (2)
  - Injection site paraesthesia [Not Recovered/Not Resolved]
  - Implant site reaction [Recovered/Resolved]
